FAERS Safety Report 8460404-7 (Version None)
Quarter: 2012Q2

REPORT INFORMATION
  Report Type: 
  Country: None (occurrence: None)
  Receive Date: 20120622
  Receipt Date: 20120613
  Transmission Date: 20120825
  Serious: Yes (Other)
  Sender: FDA-Public Use
  Company Number: FR-ELI_LILLY_AND_COMPANY-FR201206004580

PATIENT
  Age: 44 Year
  Sex: Male

DRUGS (1)
  1. ALIMTA [Suspect]
     Route: 042

REACTIONS (2)
  - ATYPICAL MYCOBACTERIAL PNEUMONIA [None]
  - GENERAL PHYSICAL HEALTH DETERIORATION [None]
